FAERS Safety Report 16722782 (Version 2)
Quarter: 2020Q3

REPORT INFORMATION
  Report Type: Report from Study
  Country: None (occurrence: JP)
  Receive Date: 20190821
  Receipt Date: 20200709
  Transmission Date: 20201102
  Serious: Yes (Death, Other)
  Sender: FDA-Public Use
  Company Number: JP-ABBVIE-17K-087-2181150-00

PATIENT
  Age: 69 Year
  Sex: Male
  Weight: 63 kg

DRUGS (10)
  1. DUODOPA [Suspect]
     Active Substance: CARBIDOPA\LEVODOPA
     Dosage: MD 7 ML, CD 2 ML/HRS ? 16 HRS, ED 1 ML/TIMES ? ONCE TO TWICE
     Route: 050
     Dates: start: 20171002, end: 20171115
  2. DUODOPA [Suspect]
     Active Substance: CARBIDOPA\LEVODOPA
     Indication: PARKINSON^S DISEASE
     Dosage: MD 4 ML, CD 2 ML/HRS ? 16 HRS, ED 1 ML/TIMES ? ONCE TO TWICE
     Route: 050
     Dates: start: 20170925, end: 20171002
  3. CARBIDOPA AND LEVODOPA [Concomitant]
     Active Substance: CARBIDOPA\LEVODOPA
     Indication: PARKINSON^S DISEASE
     Route: 048
     Dates: start: 2007
  4. CARBIDOPA AND LEVODOPA [Concomitant]
     Active Substance: CARBIDOPA\LEVODOPA
     Route: 048
     Dates: start: 20171007
  5. MAGNESIUM OXIDE. [Concomitant]
     Active Substance: MAGNESIUM OXIDE
     Indication: PRODUCT USED FOR UNKNOWN INDICATION
     Route: 048
  6. CLONAZEPAM. [Concomitant]
     Active Substance: CLONAZEPAM
     Indication: PRODUCT USED FOR UNKNOWN INDICATION
     Route: 048
  7. AMANTADINE HYDROCHLORIDE. [Concomitant]
     Active Substance: AMANTADINE HYDROCHLORIDE
     Indication: ON AND OFF PHENOMENON
     Route: 048
     Dates: start: 20180723, end: 20180925
  8. ROTIGOTINE [Concomitant]
     Active Substance: ROTIGOTINE
     Indication: PARKINSON^S DISEASE
     Route: 062
  9. AMANTADINE HYDROCHLORIDE. [Concomitant]
     Active Substance: AMANTADINE HYDROCHLORIDE
     Route: 048
     Dates: start: 20180926
  10. DUODOPA [Suspect]
     Active Substance: CARBIDOPA\LEVODOPA
     Dosage: MD 7 ML, CD 2 ML/HRS ? 16 HRS, ED 1 ML/TIMES ? ONCE TO TWICE
     Route: 050
     Dates: start: 20171115

REACTIONS (8)
  - Device connection issue [Recovered/Resolved]
  - Expired product administered [Unknown]
  - Asphyxia [Fatal]
  - Intentional medical device removal by patient [Unknown]
  - Device issue [Unknown]
  - Fall [Unknown]
  - Stoma site extravasation [Recovered/Resolved]
  - On and off phenomenon [Not Recovered/Not Resolved]

NARRATIVE: CASE EVENT DATE: 20171121
